FAERS Safety Report 7690757-9 (Version None)
Quarter: 2011Q3

REPORT INFORMATION
  Report Type: 
  Country: None (occurrence: None)
  Receive Date: 20110812
  Receipt Date: 20110802
  Transmission Date: 20111222
  Serious: Yes (Hospitalization, Other)
  Sender: FDA-Public Use
  Company Number: 2011MA010834

PATIENT
  Age: 81 Year
  Sex: Male
  Weight: 78.0187 kg

DRUGS (26)
  1. MECLOCYCLINE [Concomitant]
  2. ISOSORBIDE DINITRATE [Concomitant]
  3. SYNTHROID [Concomitant]
  4. WARFARIN SODIUM [Concomitant]
  5. DECLOMYCIN [Concomitant]
  6. GLUCOTROL [Concomitant]
  7. ASPIRIN [Concomitant]
  8. DIGOXIN [Suspect]
     Indication: CARDIAC FAILURE
     Dosage: .250 MG;QD;O
     Route: 048
     Dates: start: 20060307
  9. GLIPIZIDE [Concomitant]
  10. LANOXIN [Concomitant]
  11. OXYGEN [Concomitant]
  12. AVODART [Concomitant]
  13. FLOMAX [Concomitant]
  14. AZATHIOPRINE [Concomitant]
  15. THIAMINE [Concomitant]
  16. SPIRIVA [Concomitant]
  17. NITROGLYCERIN COMP. [Concomitant]
  18. ALBUTEROL SULFATE AUTOHALER [Concomitant]
  19. CARDIZEM CD [Concomitant]
  20. FOSAMAX [Concomitant]
  21. FOLIC ACID [Concomitant]
  22. ADVAIR DISKUS 100/50 [Concomitant]
  23. LIPITOR [Concomitant]
  24. PREDNISONE [Concomitant]
  25. IMURAN [Concomitant]
  26. NEORAL [Concomitant]

REACTIONS (82)
  - CEREBRAL MICROANGIOPATHY [None]
  - RENAL CYST [None]
  - ATELECTASIS [None]
  - CONDITION AGGRAVATED [None]
  - HAEMOPTYSIS [None]
  - CHEST DISCOMFORT [None]
  - MALIGNANT SPLENIC NEOPLASM [None]
  - VENTRICULAR HYPOKINESIA [None]
  - HEPATIC STEATOSIS [None]
  - SPLEEN DISORDER [None]
  - PAIN [None]
  - PROTEIN TOTAL DECREASED [None]
  - SPINAL OSTEOARTHRITIS [None]
  - COUGH [None]
  - BLADDER INJURY [None]
  - TRICUSPID VALVE INCOMPETENCE [None]
  - ANGINA PECTORIS [None]
  - AORTIC VALVE CALCIFICATION [None]
  - NODULE [None]
  - AORTIC ANEURYSM [None]
  - APLASIA PURE RED CELL [None]
  - MULTIPLE INJURIES [None]
  - ECONOMIC PROBLEM [None]
  - TRANSIENT ISCHAEMIC ATTACK [None]
  - CEREBRAL ISCHAEMIA [None]
  - MEMORY IMPAIRMENT [None]
  - URINARY TRACT INFECTION [None]
  - PYREXIA [None]
  - HEPATIC LESION [None]
  - AORTIC VALVE SCLEROSIS [None]
  - CARDIAC MURMUR [None]
  - BLOOD MAGNESIUM DECREASED [None]
  - BRAIN NATRIURETIC PEPTIDE INCREASED [None]
  - ADRENAL DISORDER [None]
  - VASCULAR CALCIFICATION [None]
  - PULMONARY FIBROSIS [None]
  - BRONCHITIS [None]
  - ANAEMIA [None]
  - ASTHMA [None]
  - HEPATIC CYST [None]
  - BLOOD CALCIUM DECREASED [None]
  - BLOOD ALBUMIN DECREASED [None]
  - ARRHYTHMIA SUPRAVENTRICULAR [None]
  - CONFUSIONAL STATE [None]
  - INTERNATIONAL NORMALISED RATIO INCREASED [None]
  - INAPPROPRIATE ANTIDIURETIC HORMONE SECRETION [None]
  - HYPERTHYROIDISM [None]
  - AORTIC VALVE INCOMPETENCE [None]
  - ANXIETY [None]
  - SPINAL COLUMN STENOSIS [None]
  - MENTAL STATUS CHANGES [None]
  - SPUTUM DISCOLOURED [None]
  - CHRONIC OBSTRUCTIVE PULMONARY DISEASE [None]
  - LEFT ATRIAL DILATATION [None]
  - AORTIC ARTERIOSCLEROSIS [None]
  - AORTIC DILATATION [None]
  - PULMONARY VALVE INCOMPETENCE [None]
  - CARDIOMEGALY [None]
  - THROMBOCYTOPENIA [None]
  - MUSCULAR WEAKNESS [None]
  - DYSPNOEA [None]
  - PLEURAL EFFUSION [None]
  - SPLENIC HAEMATOMA [None]
  - FALL [None]
  - NEUROGENIC BLADDER [None]
  - LEFT VENTRICULAR HYPERTROPHY [None]
  - MITRAL VALVE INCOMPETENCE [None]
  - BLOOD GLUCOSE INCREASED [None]
  - OVERSENSING [None]
  - CARBON DIOXIDE DECREASED [None]
  - ATRIAL FIBRILLATION [None]
  - SPLENITIS [None]
  - BLOOD MAGNESIUM INCREASED [None]
  - CARDIAC DISORDER [None]
  - PLATELET COUNT DECREASED [None]
  - LOBAR PNEUMONIA [None]
  - ACTIVITIES OF DAILY LIVING IMPAIRED [None]
  - ASTHENIA [None]
  - BLADDER NECK OBSTRUCTION [None]
  - MITRAL VALVE CALCIFICATION [None]
  - BLOOD UREA INCREASED [None]
  - ADRENOMEGALY [None]
